FAERS Safety Report 5355111-3 (Version None)
Quarter: 2007Q2

REPORT INFORMATION
  Report Type: 
  Country: None (occurrence: None)
  Receive Date: 20070522
  Receipt Date: 20070306
  Transmission Date: 20071010
  Serious: No
  Sender: FDA-Public Use
  Company Number: 2007SP004201

PATIENT
  Sex: Female

DRUGS (1)
  1. NOXAFIL [Suspect]
     Indication: ASPERGILLOSIS

REACTIONS (2)
  - HERPES ZOSTER [None]
  - STOMACH DISCOMFORT [None]
